FAERS Safety Report 7499876-3 (Version None)
Quarter: 2011Q2

REPORT INFORMATION
  Report Type: 
  Country: None (occurrence: None)
  Receive Date: 20110524
  Receipt Date: 20110518
  Transmission Date: 20111010
  Serious: Yes (Disabling, Other)
  Sender: FDA-Public Use
  Company Number: US-PFIZER INC-2011089079

PATIENT
  Sex: Male
  Weight: 88.435 kg

DRUGS (7)
  1. NEURONTIN [Concomitant]
     Dosage: UNK
     Dates: end: 20110502
  2. VFEND [Suspect]
     Indication: ASPERGILLOSIS
     Dosage: 200 MG, 2X/DAY
     Route: 048
     Dates: start: 20110224, end: 20110502
  3. LASIX [Concomitant]
     Indication: FLUID RETENTION
     Dosage: UNK
     Dates: start: 20110423, end: 20110502
  4. VFEND [Suspect]
     Indication: BRONCHOPULMONARY ASPERGILLOSIS
     Dosage: UNK, 2X/DAY
     Route: 042
     Dates: start: 20101201, end: 20110101
  5. VFEND [Suspect]
     Indication: LUNG DISORDER
  6. TESTOSTERONE [Concomitant]
     Dosage: UNK
     Dates: end: 20110502
  7. METHADONE [Concomitant]
     Dosage: 10 MG, 3X/DAY
     Dates: end: 20110502

REACTIONS (4)
  - ILL-DEFINED DISORDER [None]
  - PHOTOPSIA [None]
  - DIPLOPIA [None]
  - BLINDNESS [None]
